FAERS Safety Report 21140838 (Version 1)
Quarter: 2022Q3

REPORT INFORMATION
  Report Type: Spontaneous
  Country: CN (occurrence: CN)
  Receive Date: 20220728
  Receipt Date: 20220728
  Transmission Date: 20221027
  Serious: Yes (Hospitalization)
  Sender: FDA-Public Use
  Company Number: CN-STRIDES ARCOLAB LIMITED-2022SP009361

PATIENT
  Age: 30 Year
  Sex: Male

DRUGS (1)
  1. COLCHICINE [Suspect]
     Active Substance: COLCHICINE
     Indication: Product used for unknown indication
     Dosage: 0.5 MILLIGRAM/KILOGRAM, UNKNOWN
     Route: 048

REACTIONS (9)
  - Myocardial injury [Recovered/Resolved]
  - Bone marrow failure [Recovered/Resolved]
  - Gastrointestinal injury [Recovered/Resolved]
  - Muscle injury [Recovered/Resolved]
  - Myelosuppression [Recovered/Resolved]
  - Liver injury [Recovered/Resolved]
  - Disseminated intravascular coagulation [Recovered/Resolved]
  - Toxicity to various agents [Unknown]
  - Overdose [Unknown]
